FAERS Safety Report 6024793-5 (Version None)
Quarter: 2008Q4

REPORT INFORMATION
  Report Type: 
  Country: None (occurrence: None)
  Receive Date: 20081224
  Receipt Date: 20081212
  Transmission Date: 20090506
  Serious: Yes (Death)
  Sender: FDA-Public Use
  Company Number: GXKR2008GB11950

PATIENT
  Age: 82 Year
  Sex: Female

DRUGS (2)
  1. CODEINE PHOSPHATE (NGX) (CODEINE PHOSPHATE) UNKNOWN [Suspect]
     Indication: PAIN
  2. DICLOFENAC SODIUM [Suspect]
     Indication: PAIN

REACTIONS (3)
  - ABDOMINAL PAIN [None]
  - DIVERTICULAR PERFORATION [None]
  - PERITONITIS [None]
